FAERS Safety Report 6247387-5 (Version None)
Quarter: 2009Q2

REPORT INFORMATION
  Report Type: 
  Country: None (occurrence: None)
  Receive Date: 20090626
  Receipt Date: 20090616
  Transmission Date: 20091009
  Serious: Yes (Death, Other)
  Sender: FDA-Public Use
  Company Number: B0580573A

PATIENT
  Sex: Female

DRUGS (10)
  1. CEFUROXIME AXETIL [Suspect]
     Indication: BACTERIAL INFECTION
     Dosage: 250MG TWICE PER DAY
     Route: 048
     Dates: start: 20081226
  2. DAFALGAN [Suspect]
     Indication: PAIN
     Dosage: 1G FOUR TIMES PER DAY
     Route: 048
     Dates: start: 20080801, end: 20081229
  3. ROCEPHIN [Suspect]
     Indication: BACTERIAL INFECTION
     Dosage: 1G TWICE PER DAY
     Route: 042
     Dates: start: 20081226
  4. SINTROM [Suspect]
     Indication: ATRIAL FIBRILLATION
     Dosage: 2G PER DAY
     Route: 048
     Dates: start: 20081228
  5. OXAZEPAM [Concomitant]
     Route: 065
  6. PERINDOPRIL ERBUMINE [Concomitant]
     Route: 065
  7. AMLODIPINE [Concomitant]
     Route: 065
  8. HYDROCHLOROTHIAZIDE [Concomitant]
     Route: 065
  9. MOXONIDINE [Concomitant]
     Route: 065
  10. TORASEMIDE [Concomitant]
     Route: 065

REACTIONS (2)
  - CARDIOGENIC SHOCK [None]
  - HEPATOCELLULAR INJURY [None]
